FAERS Safety Report 4790452-X (Version None)
Quarter: 2005Q4

REPORT INFORMATION
  Report Type: 
  Country: None (occurrence: None)
  Receive Date: 20051005
  Receipt Date: 20050919
  Transmission Date: 20060501
  Serious: Yes (Hospitalization, Other)
  Sender: FDA-Public Use
  Company Number: US_0504115396

PATIENT
  Age: 38 Year
  Sex: Female
  Weight: 71 kg

DRUGS (15)
  1. ZYPREXA [Suspect]
     Indication: SOMNOLENCE
     Dosage: UNK
     Route: 065
     Dates: start: 20010101, end: 20040202
  2. PROZAC [Concomitant]
  3. GEODON [Concomitant]
  4. PROPRANOLOL [Concomitant]
  5. METOPROLOL [Concomitant]
  6. DEPAKOTE [Concomitant]
  7. TRAZODONE HCL [Concomitant]
  8. LORAZEPAM [Concomitant]
  9. ACYCLOVIR [Concomitant]
  10. MIRTAZAPINE [Concomitant]
  11. CATAPRES [Concomitant]
  12. ANTABUSE [Concomitant]
  13. METHADONE HCL [Concomitant]
  14. CIMETIDINE [Concomitant]
  15. HYDROXYZINE [Concomitant]

REACTIONS (11)
  - CONDITION AGGRAVATED [None]
  - CONSTIPATION [None]
  - DIABETES MELLITUS [None]
  - DIABETIC COMA [None]
  - DIABETIC KETOACIDOSIS [None]
  - GASTROINTESTINAL HAEMORRHAGE [None]
  - HAEMORRHOIDS [None]
  - HEPATIC CIRRHOSIS [None]
  - HYPERGLYCAEMIA [None]
  - INTERNATIONAL NORMALISED RATIO INCREASED [None]
  - PANCREATITIS [None]
